FAERS Safety Report 8808371 (Version 1)
Quarter: 2012Q4

REPORT INFORMATION
  Report Type: 
  Country: US (occurrence: US)
  Receive Date: 20120926
  Receipt Date: 20120926
  Transmission Date: 20130627
  Serious: No
  Sender: FDA-Public Use
  Company Number: US-B.I. PHARMACEUTICALS,INC./RIDGEFIELD-2012-BP-23156BP

PATIENT
  Sex: Female
  Weight: 68 kg

DRUGS (8)
  1. PRADAXA [Suspect]
     Indication: ATRIAL FIBRILLATION
     Dosage: 150 mg
     Route: 048
     Dates: start: 201111
  2. CELEBREX [Concomitant]
     Indication: ARTHRITIS
     Dosage: 200 mg
     Route: 048
     Dates: start: 2000
  3. LIPITOR [Concomitant]
     Indication: BLOOD CHOLESTEROL INCREASED
     Route: 048
  4. TOPROL [Concomitant]
     Route: 048
  5. EVISTA [Concomitant]
     Route: 048
  6. HYDROCHLOROTHIAZIDE [Concomitant]
     Route: 048
  7. CALTRATE [Concomitant]
     Route: 048
  8. FISH OIL [Concomitant]
     Route: 048

REACTIONS (1)
  - Alopecia [Not Recovered/Not Resolved]
